FAERS Safety Report 4443552-8 (Version None)
Quarter: 2004Q3

REPORT INFORMATION
  Report Type: 
  Country: None (occurrence: None)
  Receive Date: 20040901
  Receipt Date: 20040823
  Transmission Date: 20050211
  Serious: Yes (Death)
  Sender: FDA-Public Use
  Company Number: B0343355A

PATIENT
  Sex: 0

DRUGS (2)
  1. VINORELBINE TARTRATE [Suspect]
     Indication: NON-SMALL CELL LUNG CANCER
     Dosage: SEE DOSAGE TEXT / INTRAVENOUS
     Route: 042
  2. GEFITINIB (FORMULATION UNKNOWN) (GEFITINIB) [Suspect]
     Indication: NON-SMALL CELL LUNG CANCER
     Dosage: ORAL
     Route: 048

REACTIONS (3)
  - CARDIAC ARREST [None]
  - DIARRHOEA [None]
  - DRUG TOXICITY [None]
